FAERS Safety Report 20074310 (Version 2)
Quarter: 2022Q2

REPORT INFORMATION
  Report Type: Report from Study
  Country: JP (occurrence: None)
  Receive Date: 20211116
  Receipt Date: 20220428
  Transmission Date: 20220721
  Serious: Yes (Death, Other)
  Sender: FDA-Public Use
  Company Number: 2021A485413

PATIENT
  Age: 73 Year
  Sex: Male
  Weight: 58 kg

DRUGS (8)
  1. IMFINZI [Suspect]
     Active Substance: DURVALUMAB
     Indication: Non-small cell lung cancer
     Route: 041
     Dates: start: 20201029, end: 20201113
  2. RISPERIDONE [Concomitant]
     Active Substance: RISPERIDONE
     Route: 048
  3. MAGNESIUM OXIDE [Concomitant]
     Active Substance: MAGNESIUM OXIDE
     Dosage: 500.0MG ONCE/SINGLE ADMINISTRATION
     Route: 048
  4. CALONAL [Concomitant]
     Active Substance: ACETAMINOPHEN
     Dosage: 400.0MG ONCE/SINGLE ADMINISTRATION
     Route: 048
     Dates: start: 20200906, end: 20210908
  5. TRAMADOL [Concomitant]
     Active Substance: TRAMADOL
     Route: 048
     Dates: start: 20200906, end: 20210219
  6. SENNOSIDES [Concomitant]
     Active Substance: SENNOSIDES
     Dosage: 24.0MG AS REQUIRED
     Route: 048
  7. AMLODIPINE [Concomitant]
     Active Substance: AMLODIPINE BESYLATE
     Route: 048
  8. OXYCONTIN [Concomitant]
     Active Substance: OXYCODONE HYDROCHLORIDE
     Route: 048
     Dates: start: 20200906, end: 20200913

REACTIONS (6)
  - Pneumonitis [Not Recovered/Not Resolved]
  - Cholangitis [Recovered/Resolved]
  - Gamma-glutamyltransferase increased [Recovering/Resolving]
  - Blood alkaline phosphatase increased [Recovered/Resolved]
  - Malignant neoplasm progression [Unknown]
  - Death [Fatal]

NARRATIVE: CASE EVENT DATE: 20201127
